FAERS Safety Report 5108691-7 (Version None)
Quarter: 2006Q3

REPORT INFORMATION
  Report Type: 
  Country: None (occurrence: None)
  Receive Date: 20060915
  Receipt Date: 20060904
  Transmission Date: 20061208
  Serious: Yes (Hospitalization)
  Sender: FDA-Public Use
  Company Number: 2006107182

PATIENT
  Sex: Male

DRUGS (1)
  1. PHENYTOIN SODIUM CAP [Suspect]
     Indication: GRAND MAL CONVULSION
     Dosage: 300 MG (300 MG, 1 IN 1 D), ORAL
     Route: 048

REACTIONS (5)
  - BLOOD COUNT ABNORMAL [None]
  - LYMPHADENOPATHY [None]
  - MOUTH ULCERATION [None]
  - PYREXIA [None]
  - RASH [None]
